FAERS Safety Report 11214900 (Version 2)
Quarter: 2015Q3

REPORT INFORMATION
  Report Type: Spontaneous
  Country: US (occurrence: None)
  Receive Date: 20150622
  Receipt Date: 20150709
  Transmission Date: 20151125
  Serious: Yes (Hospitalization)
  Sender: FDA-Public Use
  Company Number: 1713747-2015-999178

PATIENT
  Age: 77 Year
  Sex: Female

DRUGS (16)
  1. CALCIUM ACETATE. [Concomitant]
     Active Substance: CALCIUM ACETATE
  2. VITAMIN D3 [Concomitant]
     Active Substance: CHOLECALCIFEROL
  3. DELFLEX [Suspect]
     Active Substance: CALCIUM CHLORIDE\DEXTROSE MONOHYDRATE\MAGNESIUM CHLORIDE\SODIUM CHLORIDE\SODIUM LACTATE
     Indication: PERITONEAL DIALYSIS
     Route: 033
     Dates: start: 20140905
  4. LIBERTY CYCLER SET [Concomitant]
     Active Substance: DEVICE
  5. ALPRAZOLAM. [Concomitant]
     Active Substance: ALPRAZOLAM
  6. CARVEDILOL. [Concomitant]
     Active Substance: CARVEDILOL
  7. OMEPRAZOLE. [Concomitant]
     Active Substance: OMEPRAZOLE
  8. INSULIN [Concomitant]
     Active Substance: INSULIN NOS
  9. PRAVASTATIN [Concomitant]
     Active Substance: PRAVASTATIN\PRAVASTATIN SODIUM
  10. CALCITRIOL. [Concomitant]
     Active Substance: CALCITRIOL
  11. TORSEMIDE. [Concomitant]
     Active Substance: TORSEMIDE
  12. CITALOPRAM [Concomitant]
     Active Substance: CITALOPRAM HYDROBROMIDE
  13. MINOXIDIL. [Concomitant]
     Active Substance: MINOXIDIL
  14. NEPHROCAP [Concomitant]
  15. TEMAZEPAM. [Concomitant]
     Active Substance: TEMAZEPAM
  16. LIBERTY CYCLER [Concomitant]
     Active Substance: DEVICE

REACTIONS (4)
  - Dialysis related complication [None]
  - Loss of consciousness [None]
  - Dizziness [None]
  - Hypoglycaemia [None]

NARRATIVE: CASE EVENT DATE: 20150512
